FAERS Safety Report 8186029-9 (Version None)
Quarter: 2012Q1

REPORT INFORMATION
  Report Type: 
  Country: None (occurrence: None)
  Receive Date: 20120306
  Receipt Date: 20120229
  Transmission Date: 20120608
  Serious: Yes (Hospitalization)
  Sender: FDA-Public Use
  Company Number: US-BIOGENIDEC-2012BI007698

PATIENT
  Age: 60 Year
  Sex: Female

DRUGS (2)
  1. TYSABRI [Suspect]
     Indication: MULTIPLE SCLEROSIS
     Route: 042
     Dates: start: 20070830, end: 20090827
  2. TYSABRI [Suspect]
     Route: 042
     Dates: start: 20100407, end: 20120126

REACTIONS (2)
  - ADVERSE DRUG REACTION [None]
  - UPPER GASTROINTESTINAL HAEMORRHAGE [None]
